FAERS Safety Report 5358405-0 (Version None)
Quarter: 2007Q2

REPORT INFORMATION
  Report Type: 
  Country: None (occurrence: None)
  Receive Date: 20070615
  Receipt Date: 20070608
  Transmission Date: 20071010
  Serious: Yes (Hospitalization, Disabling)
  Sender: FDA-Public Use
  Company Number: PHNU2007DE02039

PATIENT
  Age: 50 Year
  Sex: Female
  Weight: 60 kg

DRUGS (23)
  1. CO-DIOVAN [Suspect]
     Indication: HYPERTENSION
     Dosage: 1-0-0 TABLET/DAY
     Route: 048
     Dates: start: 20061119, end: 20061120
  2. CO-DIOVAN [Suspect]
     Dosage: 0.5-0-0 TABLET/DAY
     Route: 048
     Dates: start: 20061122, end: 20061210
  3. THIAMAZOLE [Suspect]
     Dosage: 1-0-0 TABLET/DAY
     Route: 048
     Dates: start: 20061122, end: 20061210
  4. ACETYLSALICYLIC ACID SRT [Concomitant]
     Dosage: 0-1-0 TABLET/DAY
     Route: 048
     Dates: start: 20061119, end: 20061210
  5. TORSEMIDE [Concomitant]
     Dosage: 1-0-0 TABLET/DAY
     Dates: start: 20061120, end: 20061120
  6. TORSEMIDE [Concomitant]
     Dosage: 1 DF, QD
     Route: 048
     Dates: start: 20010709, end: 20061118
  7. QUERTO [Concomitant]
     Dosage: 1 TABLET/DAY
     Route: 048
     Dates: start: 20061118
  8. QUERTO [Concomitant]
     Dosage: 1-0-1 TABLETS/DAY
     Route: 048
     Dates: start: 20061119, end: 20061128
  9. QUERTO [Concomitant]
     Dosage: 1-0-1 TABLETS/DAY
     Route: 048
     Dates: start: 20061130, end: 20061209
  10. STEROFUNDIN [Concomitant]
     Dosage: UNK, ONCE/SINGLE
     Route: 042
     Dates: start: 20061118, end: 20061118
  11. FURESIS [Concomitant]
     Dosage: 1 AMPOULE/DAY
     Route: 042
     Dates: start: 20061118, end: 20061118
  12. FURESIS [Concomitant]
     Dosage: 1 AMPOULE/DAY
     Route: 042
     Dates: start: 20061123, end: 20061123
  13. BELOC [Concomitant]
     Dosage: 0-0-1 DF/DAY
     Dates: start: 20061118, end: 20061118
  14. FINLEPSIN [Concomitant]
     Dosage: 400 MG + 200 MG/DAY
     Dates: start: 20061118, end: 20061118
  15. FINLEPSIN [Concomitant]
     Dosage: 200 MG, TID
     Dates: start: 20061119, end: 20061119
  16. FINLEPSIN [Concomitant]
     Dosage: 200 MG, QD
     Dates: start: 20061120, end: 20061120
  17. FELODIPINE [Concomitant]
     Dosage: 1-0-1 TABLETS/DAY
     Route: 048
     Dates: start: 20061130, end: 20061209
  18. RAMIPRIL [Concomitant]
     Dosage: 0.5-0-0 TABLET/DAY
     Route: 048
     Dates: start: 20010709, end: 20061118
  19. METOPROLOL ^RATIOPHARM^ [Concomitant]
     Dosage: 1-0-1 TABLETS/DAY
     Route: 048
     Dates: start: 20010709, end: 20061118
  20. NIFEDIPINE [Concomitant]
     Dosage: 1 CAPSULE/WEEK
     Dates: start: 20010709, end: 20061118
  21. PARACETAMOL [Concomitant]
     Dosage: 1 TABLET, BID
     Route: 048
     Dates: start: 20061204, end: 20061207
  22. NASENSPRAY E-RATIOPHARM [Concomitant]
     Dosage: 1 HUB, TID
     Dates: start: 20061204, end: 20061207
  23. IRENAT [Concomitant]
     Dosage: 20 DF, TID
     Route: 048
     Dates: start: 20061128, end: 20061128

REACTIONS (6)
  - ALANINE AMINOTRANSFERASE INCREASED [None]
  - ASPARTATE AMINOTRANSFERASE INCREASED [None]
  - BLOOD ALKALINE PHOSPHATASE INCREASED [None]
  - BLOOD BILIRUBIN INCREASED [None]
  - GAMMA-GLUTAMYLTRANSFERASE INCREASED [None]
  - HEPATITIS ACUTE [None]
